FAERS Safety Report 7388931-4 (Version None)
Quarter: 2011Q2

REPORT INFORMATION
  Report Type: 
  Country: None (occurrence: None)
  Receive Date: 20110401
  Receipt Date: 20110328
  Transmission Date: 20111010
  Serious: No
  Sender: FDA-Public Use
  Company Number: US-PFIZER INC-2011069493

PATIENT
  Sex: Female

DRUGS (3)
  1. CALAN [Suspect]
     Dosage: 120 MG, UNK
  2. CALAN [Suspect]
     Indication: MIGRAINE
     Dosage: 180 MG, UNK
  3. VERAPAMIL HCL [Suspect]
     Dosage: 180 MG, UNK

REACTIONS (3)
  - ALLERGY TO CHEMICALS [None]
  - FOOD ALLERGY [None]
  - GASTROINTESTINAL DISORDER [None]
